FAERS Safety Report 14812767 (Version 1)
Quarter: 2018Q2

REPORT INFORMATION
  Report Type: Spontaneous
  Country: FR (occurrence: FR)
  Receive Date: 20180426
  Receipt Date: 20180426
  Transmission Date: 20180711
  Serious: Yes (Other)
  Sender: FDA-Public Use
  Company Number: FR-MERCK KGAA-2046515

PATIENT
  Age: 63 Year
  Sex: Male

DRUGS (1)
  1. NOVOTHYROX [Suspect]
     Active Substance: LEVOTHYROXINE SODIUM
     Indication: PRODUCT USED FOR UNKNOWN INDICATION
     Dates: start: 2017

REACTIONS (12)
  - Loss of consciousness [None]
  - Fatigue [None]
  - Impaired driving ability [None]
  - Glycosylated haemoglobin increased [None]
  - Housebound [None]
  - Mental disorder [None]
  - Blood glucose increased [None]
  - Fear [None]
  - Disturbance in attention [None]
  - Blood thyroid stimulating hormone decreased [None]
  - Nausea [None]
  - Loss of personal independence in daily activities [None]
